FAERS Safety Report 5861498-5 (Version None)
Quarter: 2008Q3

REPORT INFORMATION
  Report Type: 
  Country: None (occurrence: None)
  Receive Date: 20080826
  Receipt Date: 20080811
  Transmission Date: 20090109
  Serious: Yes (Hospitalization)
  Sender: FDA-Public Use
  Company Number: 2008AL005973

PATIENT
  Age: 70 Year
  Sex: Female
  Weight: 74.3899 kg

DRUGS (1)
  1. DIGOXIN [Suspect]
     Indication: CARDIAC DISORDER
     Dosage: 0.125MG DAILY PO SEVERAL YEARS
     Route: 048

REACTIONS (4)
  - CARDIAC DISORDER [None]
  - FEELING ABNORMAL [None]
  - LOSS OF CONSCIOUSNESS [None]
  - MALAISE [None]
